FAERS Safety Report 4648769-5 (Version None)
Quarter: 2005Q2

REPORT INFORMATION
  Report Type: 
  Country: None (occurrence: None)
  Receive Date: 20050427
  Receipt Date: 20050414
  Transmission Date: 20051028
  Serious: Yes (Other)
  Sender: FDA-Public Use
  Company Number: 200511559BCC

PATIENT
  Age: 81 Year
  Sex: Female
  Weight: 58.9676 kg

DRUGS (3)
  1. ALEVE [Suspect]
     Indication: PAIN IN EXTREMITY
     Dosage: 220 MG, QID, ORAL
     Route: 048
     Dates: start: 20050308, end: 20050310
  2. ATENOLOL [Concomitant]
  3. TRIAMTERENE [Concomitant]

REACTIONS (1)
  - BLOOD PRESSURE SYSTOLIC INCREASED [None]
